FAERS Safety Report 22601192 (Version 1)
Quarter: 2023Q2

REPORT INFORMATION
  Report Type: Spontaneous
  Country: CN (occurrence: None)
  Receive Date: 20230614
  Receipt Date: 20230614
  Transmission Date: 20230722
  Serious: Yes (Other)
  Sender: FDA-Public Use
  Company Number: 2023A134322

PATIENT
  Age: 73 Year
  Sex: Female
  Weight: 50 kg

DRUGS (2)
  1. TICAGRELOR [Suspect]
     Active Substance: TICAGRELOR
     Indication: Chemotherapy
     Route: 048
     Dates: start: 20230530, end: 20230605
  2. ASPIRIN [Concomitant]
     Active Substance: ASPIRIN
     Route: 048
     Dates: start: 20230530, end: 20230605

REACTIONS (4)
  - Chest discomfort [Recovering/Resolving]
  - Wheezing [Recovering/Resolving]
  - Asphyxia [Recovering/Resolving]
  - Middle insomnia [Recovering/Resolving]

NARRATIVE: CASE EVENT DATE: 20230531
